FAERS Safety Report 13088364 (Version 2)
Quarter: 2017Q1

REPORT INFORMATION
  Report Type: Report from Study
  Country: CA (occurrence: CA)
  Receive Date: 20170105
  Receipt Date: 20170330
  Transmission Date: 20170428
  Serious: Yes (Other)
  Sender: FDA-Public Use
  Company Number: CA-JNJFOC-20170100041

PATIENT
  Sex: Female

DRUGS (1)
  1. STELARA [Suspect]
     Active Substance: USTEKINUMAB
     Indication: PSORIATIC ARTHROPATHY
     Route: 058
     Dates: start: 20161110

REACTIONS (3)
  - Carpal tunnel syndrome [Not Recovered/Not Resolved]
  - Psoriatic arthropathy [Unknown]
  - Synovial cyst [Not Recovered/Not Resolved]
